FAERS Safety Report 6332461-5 (Version None)
Quarter: 2009Q3

REPORT INFORMATION
  Report Type: 
  Country: None (occurrence: None)
  Receive Date: 20090828
  Receipt Date: 20090819
  Transmission Date: 20100115
  Serious: Yes (Hospitalization, Other)
  Sender: FDA-Public Use
  Company Number: DE-AMGEN-UK359567

PATIENT
  Sex: Female
  Weight: 56 kg

DRUGS (2)
  1. NEULASTA [Suspect]
     Indication: CHEMOTHERAPY
     Route: 058
     Dates: start: 20090301
  2. EPIRUBICIN [Suspect]
     Route: 042
     Dates: start: 20090227, end: 20090227

REACTIONS (2)
  - DRUG INEFFECTIVE [None]
  - FEBRILE NEUTROPENIA [None]
